FAERS Safety Report 21006903 (Version 2)
Quarter: 2022Q3

REPORT INFORMATION
  Report Type: Spontaneous
  Country: US (occurrence: US)
  Receive Date: 20220625
  Receipt Date: 20220722
  Transmission Date: 20221026
  Serious: No
  Sender: FDA-Public Use
  Company Number: US-BRISTOL-MYERS SQUIBB COMPANY-2022-057515

PATIENT
  Age: 35 Year
  Sex: Male
  Weight: 67.3 kg

DRUGS (6)
  1. REVLIMID [Suspect]
     Active Substance: LENALIDOMIDE
     Indication: Hodgkin^s disease
     Dosage: FREQ: 21 DAYS ON, 7 DAYS OFF
     Route: 048
     Dates: start: 20220614
  2. TRIAMCINOLONE [Concomitant]
     Active Substance: TRIAMCINOLONE
     Dosage: 0.1% CREAM.
     Route: 065
     Dates: start: 20220610
  3. NAYZILAM [Concomitant]
     Active Substance: MIDAZOLAM
     Dosage: 5MG/0.1ML NAS SPRY 2 UNITS.
     Route: 065
     Dates: start: 20220610
  4. SF 5000 PLUS [Concomitant]
     Active Substance: SODIUM FLUORIDE
     Dosage: 1.1% CREAM.
     Route: 065
     Dates: start: 20220610
  5. PREDNISONE [Concomitant]
     Active Substance: PREDNISONE
     Route: 065
  6. ASPIRIN [Concomitant]
     Active Substance: ASPIRIN
     Dosage: EC LOW DOSE TABLETS.
     Route: 065
     Dates: start: 20220610

REACTIONS (2)
  - Rash [Unknown]
  - Intentional product use issue [Unknown]
